FAERS Safety Report 13690267 (Version 1)
Quarter: 2017Q2

REPORT INFORMATION
  Report Type: Spontaneous
  Country: US (occurrence: US)
  Receive Date: 20170623
  Receipt Date: 20170623
  Transmission Date: 20170830
  Serious: Yes (Hospitalization)
  Sender: FDA-Public Use
  Company Number: None

PATIENT
  Age: 80 Year
  Sex: Male

DRUGS (3)
  1. METRONIDAZOLE. [Suspect]
     Active Substance: METRONIDAZOLE
     Indication: CLOSTRIDIUM DIFFICILE COLITIS
     Route: 048
     Dates: start: 20170615, end: 20170617
  2. METRONIDAZOLE. [Suspect]
     Active Substance: METRONIDAZOLE
     Indication: THROMBOSIS
     Route: 048
     Dates: start: 20170615, end: 20170617
  3. METRONIDAZOLE. [Suspect]
     Active Substance: METRONIDAZOLE
     Indication: CARDIAC ANEURYSM
     Route: 048
     Dates: start: 20170615, end: 20170617

REACTIONS (2)
  - Gastric haemorrhage [None]
  - International normalised ratio abnormal [None]

NARRATIVE: CASE EVENT DATE: 20170617
